FAERS Safety Report 8141880-6 (Version None)
Quarter: 2012Q1

REPORT INFORMATION
  Report Type: 
  Country: None (occurrence: None)
  Receive Date: 20120216
  Receipt Date: 20120208
  Transmission Date: 20120608
  Serious: Yes (Death, Hospitalization)
  Sender: FDA-Public Use
  Company Number: PH-BAXTER-2012BH003832

PATIENT
  Sex: Female

DRUGS (2)
  1. DIANEAL [Suspect]
     Indication: PERITONEAL DIALYSIS
     Route: 033
     Dates: start: 20120101
  2. DIANEAL [Suspect]
     Route: 033
     Dates: start: 20120111

REACTIONS (4)
  - MULTI-ORGAN FAILURE [None]
  - DIABETIC GANGRENE [None]
  - SEPSIS [None]
  - PNEUMONIA [None]
